FAERS Safety Report 11980103 (Version 4)
Quarter: 2016Q3

REPORT INFORMATION
  Report Type: Report from Study
  Country: DE (occurrence: DE)
  Receive Date: 20160129
  Receipt Date: 20160706
  Transmission Date: 20161109
  Serious: Yes (Hospitalization, Other)
  Sender: FDA-Public Use
  Company Number: DE-SYMPLMED PHARMACEUTICALS-2016SYMPLMED000129

PATIENT

DRUGS (4)
  1. VIACORAM [Suspect]
     Active Substance: AMLODIPINE BESYLATE\PERINDOPRIL ARGININE
     Indication: HYPERTENSION
     Dosage: 1 (3.5MG/2.5MG) TABLET, QD
     Route: 048
     Dates: start: 20150928, end: 20151019
  2. VIACORAM [Suspect]
     Active Substance: AMLODIPINE BESYLATE\PERINDOPRIL ARGININE
     Dosage: 1 (7MG/5MG) TABLET, QD
     Route: 048
     Dates: start: 20151020, end: 20160112
  3. HYDROCHLOROTHIAZIDE. [Concomitant]
     Active Substance: HYDROCHLOROTHIAZIDE
     Indication: HYPERTENSION
     Dosage: 95 MG, QD
     Dates: start: 20151005
  4. METOPROLOL                         /00376902/ [Concomitant]
     Active Substance: METOPROLOL
     Indication: HYPERTENSION
     Dosage: 12.5 MG, QD
     Dates: start: 20151124

REACTIONS (6)
  - Renin increased [Unknown]
  - Left ventricular hypertrophy [Unknown]
  - Adrenal adenoma [Unknown]
  - Drug ineffective [Unknown]
  - Aortic aneurysm [Recovered/Resolved]
  - Renal cyst haemorrhage [Unknown]

NARRATIVE: CASE EVENT DATE: 20151021
